FAERS Safety Report 5183894-4 (Version None)
Quarter: 2006Q4

REPORT INFORMATION
  Report Type: 
  Country: None (occurrence: None)
  Receive Date: 20061220
  Receipt Date: 20060224
  Transmission Date: 20070319
  Serious: No
  Sender: FDA-Public Use
  Company Number: US-GLAXOSMITHKLINE-A0595037A

PATIENT
  Age: 35 Year
  Sex: Male

DRUGS (13)
  1. NICODERM CQ [Suspect]
     Dates: start: 20060218, end: 20060218
  2. TOPROL-XL [Concomitant]
  3. ALTACE [Concomitant]
  4. PROTONIX [Concomitant]
  5. ORAP [Concomitant]
  6. VYTORIN [Concomitant]
  7. ZOLOFT [Concomitant]
  8. PLAVIX [Concomitant]
  9. AVANDAMET [Concomitant]
  10. ASPIRIN [Concomitant]
  11. ONE A DAY [Concomitant]
  12. OMEGA 3 FISH OIL [Concomitant]
  13. NITROGLYCERIN [Concomitant]

REACTIONS (1)
  - VOMITING [None]
